FAERS Safety Report 5007950-6 (Version None)
Quarter: 2006Q2

REPORT INFORMATION
  Report Type: 
  Country: None (occurrence: None)
  Receive Date: 20060517
  Receipt Date: 20060504
  Transmission Date: 20061013
  Serious: Yes (Other)
  Sender: FDA-Public Use
  Company Number: 224770

PATIENT
  Sex: Female

DRUGS (2)
  1. AVASTIN [Suspect]
     Indication: PANCREATIC CARCINOMA METASTATIC
  2. GEMCITABINE [Concomitant]

REACTIONS (5)
  - CEREBRAL DISORDER [None]
  - HEADACHE [None]
  - HYPERTENSION [None]
  - REVERSIBLE POSTERIOR LEUKOENCEPHALOPATHY SYNDROME [None]
  - VISUAL DISTURBANCE [None]
